FAERS Safety Report 16897550 (Version 2)
Quarter: 2020Q3

REPORT INFORMATION
  Report Type: Report from Study
  Country: US (occurrence: US)
  Receive Date: 20191009
  Receipt Date: 20200810
  Transmission Date: 20201102
  Serious: Yes (Other)
  Sender: FDA-Public Use
  Company Number: US-ROCHE-2429386

PATIENT
  Age: 86 Year
  Sex: Female

DRUGS (4)
  1. ATEZOLIZUMAB. [Suspect]
     Active Substance: ATEZOLIZUMAB
     Indication: CHOLANGIOCARCINOMA
     Route: 042
  2. COBIMETINIB. [Suspect]
     Active Substance: COBIMETINIB
     Indication: BILIARY NEOPLASM
  3. ATEZOLIZUMAB. [Suspect]
     Active Substance: ATEZOLIZUMAB
     Indication: BILIARY NEOPLASM
  4. COBIMETINIB. [Suspect]
     Active Substance: COBIMETINIB
     Indication: CHOLANGIOCARCINOMA
     Route: 048

REACTIONS (2)
  - Infusion related reaction [Unknown]
  - Hypertension [Unknown]
